FAERS Safety Report 5816308-9 (Version None)
Quarter: 2008Q3

REPORT INFORMATION
  Report Type: 
  Country: None (occurrence: None)
  Receive Date: 20080721
  Receipt Date: 20080708
  Transmission Date: 20090109
  Serious: Yes (Death)
  Sender: FDA-Public Use
  Company Number: NL-BAYER-200821845GPV

PATIENT
  Age: 62 Year
  Sex: Male
  Weight: 102 kg

DRUGS (6)
  1. AVELOX [Suspect]
     Indication: UPPER RESPIRATORY TRACT INFECTION
     Dosage: TOTAL DAILY DOSE: 400 MG  UNIT DOSE: 400 MG
     Route: 048
     Dates: start: 20071224
  2. AMOXICILLIN [Concomitant]
     Indication: DRUG USE FOR UNKNOWN INDICATION
     Route: 065
  3. ACTOS [Concomitant]
     Indication: DRUG USE FOR UNKNOWN INDICATION
     Dosage: TOTAL DAILY DOSE: 45 MG  UNIT DOSE: 45 MG
     Route: 048
  4. ACTOS [Concomitant]
     Route: 065
  5. QUINAPRIL [Concomitant]
     Indication: DRUG USE FOR UNKNOWN INDICATION
     Dosage: TOTAL DAILY DOSE: 40 MG  UNIT DOSE: 40 MG
     Route: 048
     Dates: start: 20070101
  6. METFORMIN HCL [Concomitant]
     Indication: DRUG USE FOR UNKNOWN INDICATION
     Dosage: TOTAL DAILY DOSE: 2000 MG  UNIT DOSE: 1000 MG
     Route: 048

REACTIONS (5)
  - ARRHYTHMIA [None]
  - DEATH [None]
  - MALAISE [None]
  - PALLOR [None]
  - ROAD TRAFFIC ACCIDENT [None]
